FAERS Safety Report 6837861-2 (Version None)
Quarter: 2010Q3

REPORT INFORMATION
  Report Type: 
  Country: None (occurrence: None)
  Receive Date: 20100713
  Receipt Date: 20070521
  Transmission Date: 20110219
  Serious: No
  Sender: FDA-Public Use
  Company Number: US-PFIZER INC-2007042234

PATIENT
  Sex: Female
  Weight: 70.454 kg

DRUGS (4)
  1. CHANTIX [Suspect]
     Indication: SMOKING CESSATION THERAPY
     Dates: start: 20070514
  2. SEROQUEL [Concomitant]
  3. CYMBALTA [Concomitant]
  4. DURAGESIC-100 [Concomitant]

REACTIONS (5)
  - CHILLS [None]
  - COLD SWEAT [None]
  - FATIGUE [None]
  - SOMNOLENCE [None]
  - VOMITING [None]
